FAERS Safety Report 6666108-5 (Version None)
Quarter: 2010Q1

REPORT INFORMATION
  Report Type: 
  Country: None (occurrence: None)
  Receive Date: 20100330
  Receipt Date: 20100322
  Transmission Date: 20100710
  Serious: Yes (Other)
  Sender: FDA-Public Use
  Company Number: 1022556-2010-00018

PATIENT
  Age: 36 Year
  Sex: Female

DRUGS (1)
  1. ICY HOT ARM, NECK, LEG PATCH [Suspect]
     Dosage: 1 PATCH X1, TOPICAL
     Route: 061
     Dates: start: 20100314

REACTIONS (2)
  - LIP SWELLING [None]
  - URTICARIA [None]
